FAERS Safety Report 18705037 (Version 2)
Quarter: 2021Q2

REPORT INFORMATION
  Report Type: Spontaneous
  Country: US (occurrence: US)
  Receive Date: 20210105
  Receipt Date: 20210415
  Transmission Date: 20210717
  Serious: No
  Sender: FDA-Public Use
  Company Number: US-SA-2021SA002140

PATIENT
  Age: 52 Year
  Sex: Female

DRUGS (4)
  1. DUPIXENT [Suspect]
     Active Substance: DUPILUMAB
     Dosage: 200 MG, QOW
     Route: 058
  2. ALLEGRA ALLERGY [Concomitant]
     Active Substance: FEXOFENADINE HYDROCHLORIDE
  3. NASACORT [Concomitant]
     Active Substance: TRIAMCINOLONE ACETONIDE
  4. VITAMIN D3 [Concomitant]
     Active Substance: CHOLECALCIFEROL

REACTIONS (4)
  - Psoriasis [Unknown]
  - Dry mouth [Unknown]
  - Oropharyngeal pain [Unknown]
  - Candida infection [Unknown]

NARRATIVE: CASE EVENT DATE: 202010
